FAERS Safety Report 7183889-5 (Version None)
Quarter: 2010Q4

REPORT INFORMATION
  Report Type: 
  Country: None (occurrence: None)
  Receive Date: 20101222
  Receipt Date: 20101220
  Transmission Date: 20110411
  Serious: Yes (Other)
  Sender: FDA-Public Use
  Company Number: US-RB-017140-10

PATIENT
  Age: 85 Year
  Sex: Female

DRUGS (1)
  1. MUCINEX [Suspect]
     Dosage: PATIENT HAS BEEN TAKING TWO TABLETS PER DAY, ONE IN MORNING AND ONE IN EVENING.
     Route: 048

REACTIONS (1)
  - GLAUCOMA [None]
